FAERS Safety Report 11507425 (Version 1)
Quarter: 2015Q3

REPORT INFORMATION
  Report Type: Spontaneous
  Country: US (occurrence: US)
  Receive Date: 20150903
  Receipt Date: 20150903
  Transmission Date: 20151125
  Serious: No
  Sender: FDA-Public Use
  Company Number: US-ELI_LILLY_AND_COMPANY-US200908001647

PATIENT
  Age: 65 Year
  Sex: Female

DRUGS (7)
  1. BYETTA [Concomitant]
     Active Substance: EXENATIDE
  2. METFORMIN [Concomitant]
     Active Substance: METFORMIN HYDROCHLORIDE
  3. LANTUS [Concomitant]
     Active Substance: INSULIN GLARGINE
  4. ACTOS [Concomitant]
     Active Substance: PIOGLITAZONE HYDROCHLORIDE
  5. HUMALOG [Suspect]
     Active Substance: INSULIN LISPRO
  6. ENALAPRIL [Concomitant]
     Active Substance: ENALAPRIL
  7. DIGOXIN. [Concomitant]
     Active Substance: DIGOXIN

REACTIONS (4)
  - Blood glucose increased [Recovered/Resolved]
  - Intentional product misuse [Recovered/Resolved]
  - Blood glucose increased [Unknown]
  - Anger [Recovered/Resolved]

NARRATIVE: CASE EVENT DATE: 2009
